FAERS Safety Report 11802206 (Version 1)
Quarter: 2015Q4

REPORT INFORMATION
  Report Type: Spontaneous
  Country: CN (occurrence: CN)
  Receive Date: 20151204
  Receipt Date: 20151204
  Transmission Date: 20160305
  Serious: Yes (Hospitalization)
  Sender: FDA-Public Use
  Company Number: CN-PFIZER INC-2015420999

PATIENT
  Age: 52 Year
  Sex: Male
  Weight: 60 kg

DRUGS (3)
  1. CELECOXIB. [Suspect]
     Active Substance: CELECOXIB
     Indication: INTERVERTEBRAL DISC PROTRUSION
     Dosage: 0.2 G, 2X/DAY
     Route: 048
     Dates: start: 20131018, end: 20131103
  2. CHLORZOXAZONE. [Concomitant]
     Active Substance: CHLORZOXAZONE
     Dosage: UNK
  3. CARBAMAZEPINE. [Concomitant]
     Active Substance: CARBAMAZEPINE
     Dosage: UNK

REACTIONS (8)
  - Oropharyngeal discomfort [Unknown]
  - Lip dry [Recovered/Resolved]
  - Chapped lips [Recovered/Resolved]
  - Mouth ulceration [Recovered/Resolved]
  - Drug hypersensitivity [Recovered/Resolved]
  - Rash maculo-papular [Recovered/Resolved]
  - Swelling [Recovered/Resolved]
  - Tonsillar disorder [Recovered/Resolved]

NARRATIVE: CASE EVENT DATE: 20131103
